FAERS Safety Report 4892171-8 (Version None)
Quarter: 2006Q1

REPORT INFORMATION
  Report Type: 
  Country: None (occurrence: None)
  Receive Date: 20060126
  Receipt Date: 20060116
  Transmission Date: 20060701
  Serious: Yes (Disabling, Other)
  Sender: FDA-Public Use
  Company Number: US-GILEAD-2006-0009113

PATIENT
  Age: 39 Year
  Sex: Male

DRUGS (3)
  1. VIREAD [Suspect]
     Indication: HIV INFECTION
     Dates: start: 20030101
  2. EFAVIRENZ [Concomitant]
     Indication: HIV INFECTION
     Dates: start: 20030101
  3. LAMIVUDINE [Concomitant]
     Indication: HIV INFECTION
     Dates: start: 20030101

REACTIONS (2)
  - IMMUNE RECONSTITUTION SYNDROME [None]
  - POLYARTHRITIS [None]
